FAERS Safety Report 14649686 (Version 5)
Quarter: 2021Q3

REPORT INFORMATION
  Report Type: Report from Study
  Country: NZ (occurrence: NZ)
  Receive Date: 20180316
  Receipt Date: 20210710
  Transmission Date: 20211014
  Serious: Yes (Hospitalization)
  Sender: FDA-Public Use
  Company Number: NZ-ROCHE-2083327

PATIENT
  Age: 73 Year
  Sex: Male
  Weight: 82 kg

DRUGS (20)
  1. FISH OIL [Concomitant]
     Active Substance: FISH OIL
     Route: 048
  2. GLUCOSAMINE [Concomitant]
     Active Substance: GLUCOSAMINE
     Route: 048
     Dates: start: 20150303
  3. ZOPICLONE [Concomitant]
     Active Substance: ZOPICLONE
     Indication: INSOMNIA
     Route: 048
     Dates: start: 20180223, end: 20180223
  4. MIDAZOLAM. [Concomitant]
     Active Substance: MIDAZOLAM
     Indication: BRONCHOSCOPY
     Route: 042
     Dates: start: 20180301, end: 20180301
  5. VENETOCLAX. [Suspect]
     Active Substance: VENETOCLAX
     Indication: CHRONIC LYMPHOCYTIC LEUKAEMIA
     Dosage: DATE OF MOST RECENT DOSE OF 400 MG OF VENETOCLAX PRIOR TO SERIOUS ADVERSE EVENT (SAE) 29/FEB/2016 AT
     Route: 048
     Dates: start: 20150421
  6. OBINUTUZUMAB. [Suspect]
     Active Substance: OBINUTUZUMAB
     Indication: CHRONIC LYMPHOCYTIC LEUKAEMIA
     Dosage: DOSE ACCORDING TO PROTOCOL (100 MG OR 1000 MG, DEPENDING ON SPLITTING RULES, AT CYCLE 1, DAY 1 (IF 1
     Route: 042
     Dates: start: 20150324
  7. FLAXSEED [Concomitant]
     Active Substance: FLAX SEED
     Dosage: 1 TBSP (TABLESPOON DOSING UNIT)
     Route: 048
     Dates: start: 20160331
  8. FRUSEMIDE [Concomitant]
     Active Substance: FUROSEMIDE
     Indication: DYSPNOEA
     Route: 048
     Dates: start: 20180403
  9. INFLUENZA [Concomitant]
     Active Substance: INFLUENZA VIRUS VACCINE
     Dates: start: 20130304
  10. VITAMIN C [Concomitant]
     Active Substance: ASCORBIC ACID
     Route: 048
     Dates: start: 20150103
  11. AZITHROMYCIN ANHYDROUS. [Concomitant]
     Active Substance: AZITHROMYCIN ANHYDROUS
     Indication: LOWER RESPIRATORY TRACT INFECTION
     Route: 048
     Dates: start: 20180222, end: 20180226
  12. TURMERIC [Concomitant]
     Active Substance: HERBALS\TURMERIC
     Route: 048
     Dates: start: 20150103
  13. AMOXICILLIN. [Concomitant]
     Active Substance: AMOXICILLIN
     Indication: LOWER RESPIRATORY TRACT INFECTION
     Route: 048
     Dates: start: 20180222, end: 20180222
  14. FLU VACCINE [Concomitant]
     Active Substance: INFLUENZA VIRUS VACCINE
     Dosage: 1 U
     Route: 058
     Dates: start: 20200324, end: 20200324
  15. OLIVE LEAF EXTRACT [Concomitant]
     Route: 048
     Dates: start: 20160331
  16. APPLE SEEDS [Concomitant]
     Route: 048
     Dates: start: 20160331
  17. FENTANYL. [Concomitant]
     Active Substance: FENTANYL
     Indication: BRONCHOSCOPY
     Route: 042
     Dates: start: 20180301, end: 20180301
  18. METOPROLOL. [Concomitant]
     Active Substance: METOPROLOL
     Indication: ATRIAL FIBRILLATION
     Route: 048
     Dates: start: 20180129
  19. VITAMIN B3 [Concomitant]
     Active Substance: NIACIN
     Route: 048
     Dates: start: 20150310
  20. CINNAMON. [Concomitant]
     Active Substance: CINNAMON
     Dosage: 0.3 TBSP (TABLESPOON)
     Route: 048
     Dates: start: 20141130

REACTIONS (1)
  - Pneumocystis jirovecii pneumonia [Recovering/Resolving]

NARRATIVE: CASE EVENT DATE: 20180214
